FAERS Safety Report 5702602-9 (Version None)
Quarter: 2008Q2

REPORT INFORMATION
  Report Type: 
  Country: None (occurrence: None)
  Receive Date: 20080411
  Receipt Date: 20080402
  Transmission Date: 20081010
  Serious: Yes (Other)
  Sender: FDA-Public Use
  Company Number: TW-JNJFOC-20080401812

PATIENT
  Age: 49 Year
  Sex: Female

DRUGS (1)
  1. ULTRACET [Suspect]
     Indication: PROCEDURAL PAIN
     Route: 048

REACTIONS (3)
  - DIZZINESS [None]
  - LOSS OF CONSCIOUSNESS [None]
  - OCULOGYRIC CRISIS [None]
